FAERS Safety Report 8986361 (Version 1)
Quarter: 2012Q4

REPORT INFORMATION
  Report Type: 
  Country: SE (occurrence: SE)
  Receive Date: 20121226
  Receipt Date: 20121226
  Transmission Date: 20130627
  Serious: Yes (Hospitalization)
  Sender: FDA-Public Use
  Company Number: SE-SANOFI-AVENTIS-2012SA092758

PATIENT
  Age: 78 Year
  Sex: Male

DRUGS (10)
  1. STILNOCT [Suspect]
     Indication: DRUG USE FOR UNKNOWN INDICATION
     Route: 048
     Dates: end: 201210
  2. OMEPRAZOLE [Concomitant]
  3. ENALAPRIL [Concomitant]
  4. FOLACIN [Concomitant]
     Dosage: strength: 1mg
  5. SELOKEN [Concomitant]
     Dosage: strength: 5mg
  6. WARAN [Concomitant]
     Dosage: strength: 2.5mg
  7. BEHEPAN [Concomitant]
     Dosage: strength; 1mg
  8. IMPUGAN [Concomitant]
     Dosage: strength: 40mg
  9. PREDNISOLON [Concomitant]
  10. CASODEX [Concomitant]

REACTIONS (5)
  - Cardiac failure [Recovered/Resolved]
  - Dyspnoea [Recovered/Resolved]
  - Nausea [Recovered/Resolved]
  - Dizziness [Recovered/Resolved]
  - Confusional state [Recovered/Resolved]
